FAERS Safety Report 19829724 (Version 1)
Quarter: 2021Q3

REPORT INFORMATION
  Report Type: Spontaneous
  Country: US (occurrence: US)
  Receive Date: 20210915
  Receipt Date: 20210915
  Transmission Date: 20211014
  Serious: No
  Sender: FDA-Public Use
  Company Number: US-AMGEN-USASP2021139760

PATIENT
  Age: 66 Year
  Sex: Male

DRUGS (5)
  1. DARBEPOETIN ALFA [Suspect]
     Active Substance: DARBEPOETIN ALFA
     Indication: OFF LABEL USE
  2. FEDRATINIB [Concomitant]
     Active Substance: FEDRATINIB
     Dosage: 300 MILLIGRAM, QD
  3. LUSPATERCEPT. [Concomitant]
     Active Substance: LUSPATERCEPT
     Dosage: 1 MILLIGRAM/KILOGRAM, Q3WK
  4. DARBEPOETIN ALFA [Suspect]
     Active Substance: DARBEPOETIN ALFA
     Indication: MYELOFIBROSIS
     Dosage: UNK
     Route: 065
  5. FEDRATINIB [Concomitant]
     Active Substance: FEDRATINIB
     Dosage: 400 MILLIGRAM, QD

REACTIONS (2)
  - Off label use [Unknown]
  - Drug ineffective for unapproved indication [Unknown]
